FAERS Safety Report 4945396-7 (Version None)
Quarter: 2006Q1

REPORT INFORMATION
  Report Type: 
  Country: None (occurrence: None)
  Receive Date: 20060315
  Receipt Date: 20060315
  Transmission Date: 20060701
  Serious: Yes (Life-Threatening, Hospitalization, Disabling)
  Sender: FDA-Public Use
  Company Number: None

PATIENT
  Age: 25 Year
  Sex: Male
  Weight: 95.2554 kg

DRUGS (2)
  1. BENZOCAINE-HURRICAINE-20% BEUTLICH PHARMACEUTICALS [Suspect]
     Indication: APPLICATION SITE ANAESTHESIA
     Dosage: ONCE OROPHARINGEAL
     Route: 049
     Dates: start: 20060124, end: 20060124
  2. LIDOCAINE VISCOUS [Suspect]
     Indication: APPLICATION SITE ANAESTHESIA
     Dosage: ONCE OROPHARINGEAL
     Route: 049

REACTIONS (4)
  - BLOOD METHAEMOGLOBIN PRESENT [None]
  - CYANOSIS [None]
  - OXYGEN SATURATION DECREASED [None]
  - PROCEDURAL COMPLICATION [None]
